FAERS Safety Report 6292490-7 (Version None)
Quarter: 2009Q3

REPORT INFORMATION
  Report Type: 
  Country: None (occurrence: None)
  Receive Date: 20090730
  Receipt Date: 20090730
  Transmission Date: 20100115
  Serious: Yes (Hospitalization)
  Sender: FDA-Public Use
  Company Number: None

PATIENT
  Sex: Male
  Weight: 68.3 kg

DRUGS (1)
  1. XANAX [Suspect]
     Indication: AGGRESSION
     Dosage: 2 MG TOTAL DAILY DOSE 0.5, 0.5, 1 MG Q8H PO
     Route: 048
     Dates: start: 20090215, end: 20090717

REACTIONS (2)
  - DRUG WITHDRAWAL SYNDROME [None]
  - URINARY TRACT INFECTION [None]
